FAERS Safety Report 10682835 (Version 1)
Quarter: 2014Q4

REPORT INFORMATION
  Report Type: Other
  Country: DE (occurrence: DE)
  Receive Date: 20141230
  Receipt Date: 20141230
  Transmission Date: 20150529
  Serious: Yes (Hospitalization)
  Sender: FDA-Public Use
  Company Number: DE-MYLANLABS-2014M1014826

PATIENT

DRUGS (6)
  1. SOLIAN [Concomitant]
     Active Substance: AMISULPRIDE
  2. CLOZAPIN [Suspect]
     Active Substance: CLOZAPINE
     Dosage: UNK
  3. HALDOL [Concomitant]
     Active Substance: HALOPERIDOL
  4. PANTOZOL [Concomitant]
     Active Substance: PANTOPRAZOLE SODIUM
  5. CIPRALEX [Concomitant]
     Active Substance: ESCITALOPRAM OXALATE
  6. VOLTAREN RESINAT [Concomitant]
     Active Substance: DICLOFENAC

REACTIONS (4)
  - Thrombophlebitis [Recovered/Resolved]
  - Eosinophilia [Recovered/Resolved]
  - Pyrexia [Recovered/Resolved]
  - Diarrhoea [Recovered/Resolved]

NARRATIVE: CASE EVENT DATE: 20090622
